FAERS Safety Report 18627787 (Version 1)
Quarter: 2020Q4

REPORT INFORMATION
  Report Type: Report from Study
  Country: IT (occurrence: IT)
  Receive Date: 20201217
  Receipt Date: 20201217
  Transmission Date: 20210114
  Serious: Yes (Hospitalization)
  Sender: FDA-Public Use
  Company Number: IT-MYLANLABS-2020M1103592

PATIENT
  Age: 68 Year
  Sex: Female
  Weight: 51 kg

DRUGS (7)
  1. DELORAZEPAM [Concomitant]
     Active Substance: DELORAZEPAM
     Dosage: 0.5 MILLIGRAM
  2. PARACETAMOL [Concomitant]
     Active Substance: ACETAMINOPHEN
     Indication: PYREXIA
     Dosage: 500 MILLIGRAM
     Route: 048
     Dates: start: 20131023, end: 20131024
  3. CISPLATIN. [Suspect]
     Active Substance: CISPLATIN
     Indication: HER2 POSITIVE GASTRIC CANCER
     Dosage: 120 MILLIGRAM, Q3W (DATE OF MST RECENT DOSE PRIOR TO SAE: 09/OCT/2013)
     Route: 042
     Dates: start: 20131009
  4. TRASTUZUMAB. [Suspect]
     Active Substance: TRASTUZUMAB
     Indication: HER2 POSITIVE GASTRIC CANCER
     Dosage: 408 MILLIGRAM, Q3W (DATE OF MST RECENT DOSE PRIOR TO SAE: 09/OCT/2013)
     Route: 042
     Dates: start: 20131009
  5. CAPECITABINE. [Suspect]
     Active Substance: CAPECITABINE
     Indication: HER2 POSITIVE GASTRIC CANCER
     Dosage: UNK (DATE OF MST RECENT DOSE PRIOR TO SAE: 23/OCT/2013)
     Route: 048
     Dates: start: 20131009
  6. CARDIRENE [Concomitant]
     Active Substance: ASPIRIN DL-LYSINE
     Dosage: UNK
  7. SOTALEX [Concomitant]
     Active Substance: SOTALOL
     Indication: CARDIAC DISORDER
     Dosage: 40 MILLIGRAM
     Route: 048
     Dates: start: 2012

REACTIONS (3)
  - Febrile neutropenia [Recovered/Resolved]
  - Diarrhoea [Recovered/Resolved]
  - Asthenia [Recovered/Resolved]

NARRATIVE: CASE EVENT DATE: 20131024
